FAERS Safety Report 10137212 (Version 1)
Quarter: 2014Q2

REPORT INFORMATION
  Report Type: Report from Study
  Country: US (occurrence: US)
  Receive Date: 20140429
  Receipt Date: 20140429
  Transmission Date: 20141212
  Serious: No
  Sender: FDA-Public Use
  Company Number: US-ABBVIE-14P-163-1214863-00

PATIENT
  Age: 79 Year
  Sex: Male
  Weight: 47.67 kg

DRUGS (3)
  1. ANDROGEL [Suspect]
     Indication: PRODUCT USED FOR UNKNOWN INDICATION
     Dosage: 2 PUMPS DAILY
     Route: 061
     Dates: start: 201308
  2. AMITRIPTYLINE [Concomitant]
     Indication: PRODUCT USED FOR UNKNOWN INDICATION
  3. FISH OIL [Concomitant]
     Indication: PRODUCT USED FOR UNKNOWN INDICATION

REACTIONS (4)
  - Drug administered at inappropriate site [Not Recovered/Not Resolved]
  - Application site rash [Recovering/Resolving]
  - Application site erythema [Recovering/Resolving]
  - Application site papules [Recovering/Resolving]
